FAERS Safety Report 9541209 (Version 1)
Quarter: 2013Q3

REPORT INFORMATION
  Report Type: Spontaneous
  Country: US (occurrence: US)
  Receive Date: 20130923
  Receipt Date: 20130923
  Transmission Date: 20140515
  Serious: No
  Sender: FDA-Public Use
  Company Number: US-BIOGENIDEC-2013BI088425

PATIENT
  Sex: Female

DRUGS (13)
  1. AVONEX [Suspect]
     Indication: MULTIPLE SCLEROSIS
     Route: 030
     Dates: start: 20130226
  2. ALIVE [Concomitant]
  3. BACLOFEN [Concomitant]
  4. ESTRACE [Concomitant]
  5. ESTRADIOL [Concomitant]
  6. FLEXERIL [Concomitant]
  7. OSCAL [Concomitant]
  8. SYNTHROID [Concomitant]
  9. TRAZODONE HCL [Concomitant]
  10. VALIUM [Concomitant]
  11. VITAMIN B COMPLEX [Concomitant]
  12. VITAMIN C [Concomitant]
  13. VITAMIN D [Concomitant]

REACTIONS (2)
  - Hypogeusia [Unknown]
  - Oral disorder [Unknown]
